FAERS Safety Report 7245432-1 (Version None)
Quarter: 2011Q1

REPORT INFORMATION
  Report Type: 
  Country: None (occurrence: None)
  Receive Date: 20110126
  Receipt Date: 20110118
  Transmission Date: 20110831
  Serious: Yes (Other)
  Sender: FDA-Public Use
  Company Number: GB-JNJFOC-20110104968

PATIENT
  Sex: Female

DRUGS (4)
  1. BECOTIDE [Suspect]
     Indication: PRODUCT USED FOR UNKNOWN INDICATION
     Dosage: 15 CAPSULES
     Route: 055
  2. FERROUS SULFATE TAB [Suspect]
     Indication: PRODUCT USED FOR UNKNOWN INDICATION
     Dosage: 3.0G OF ELEMENTAL IRON
     Route: 065
  3. PARACETAMOL [Suspect]
     Indication: PRODUCT USED FOR UNKNOWN INDICATION
     Route: 065
  4. PARACETAMOL [Suspect]
     Route: 065

REACTIONS (2)
  - OVERDOSE [None]
  - DRUG EXPOSURE DURING PREGNANCY [None]
